FAERS Safety Report 22714165 (Version 4)
Quarter: 2024Q1

REPORT INFORMATION
  Report Type: Report from Study
  Country: GR (occurrence: GR)
  Receive Date: 20230718
  Receipt Date: 20240311
  Transmission Date: 20240410
  Serious: Yes (Hospitalization, Other)
  Sender: FDA-Public Use
  Company Number: GR-ABBVIE-5328790

PATIENT
  Sex: Female

DRUGS (2)
  1. CARBIDOPA\LEVODOPA [Suspect]
     Active Substance: CARBIDOPA\LEVODOPA
     Indication: Parkinson^s disease
     Dosage: MORNING DOSE: 7.7 ML; CONTINUOUS RATE: 2.5 ML/H; EXTRA DOSE: 1.0 ML
     Route: 050
     Dates: start: 20210920
  2. CARBIDOPA\LEVODOPA [Suspect]
     Active Substance: CARBIDOPA\LEVODOPA
     Dosage: MORNING DOSE: 6.9 ML; CONTINUOUS RATE: 2.2 ML/H; EXTRA DOSE: 0.9 ML
     Route: 050

REACTIONS (4)
  - Hyponatraemia [Recovered/Resolved]
  - Abdominal wall haemorrhage [Recovered/Resolved]
  - Gastric haemorrhage [Recovering/Resolving]
  - Thrombosis [Recovered/Resolved]
